FAERS Safety Report 7776218-7 (Version None)
Quarter: 2011Q3

REPORT INFORMATION
  Report Type: 
  Country: None (occurrence: None)
  Receive Date: 20110926
  Receipt Date: 20110921
  Transmission Date: 20111222
  Serious: Yes (Other)
  Sender: FDA-Public Use
  Company Number: US-PFIZER INC-2011182093

PATIENT
  Sex: Male
  Weight: 77.1 kg

DRUGS (8)
  1. PRISTIQ [Suspect]
     Dosage: 50 MG, DAILY
     Route: 048
     Dates: start: 20110801, end: 20110810
  2. PRISTIQ [Suspect]
     Dosage: 25 MG, DAILY
     Route: 048
     Dates: start: 20110811, end: 20110801
  3. ASENAPINE [Concomitant]
     Indication: MENTAL DISORDER
     Dosage: 20 MG,DAILY
  4. VALTREX [Concomitant]
     Indication: ORAL HERPES
     Dosage: 1 G, AS NEEDED
     Route: 048
  5. VALTREX [Concomitant]
     Indication: BLISTER
  6. PRISTIQ [Suspect]
     Dosage: 12 MG, DAILY
     Route: 048
     Dates: start: 20110801, end: 20110814
  7. MINOCYCLINE [Concomitant]
     Indication: ACNE
     Dosage: 100 MG, EVERY 12 HOURS
  8. PRISTIQ [Suspect]
     Indication: DEPRESSION
     Dosage: 100 MG, DAILY
     Route: 048
     Dates: start: 20090101, end: 20110731

REACTIONS (7)
  - HEADACHE [None]
  - MOOD ALTERED [None]
  - ANGER [None]
  - WITHDRAWAL SYNDROME [None]
  - SEXUAL DYSFUNCTION [None]
  - BLOOD PRESSURE INCREASED [None]
  - NAUSEA [None]
